FAERS Safety Report 5096408-4 (Version None)
Quarter: 2006Q3

REPORT INFORMATION
  Report Type: 
  Country: None (occurrence: None)
  Receive Date: 20060831
  Receipt Date: 20060821
  Transmission Date: 20061208
  Serious: Yes (Other)
  Sender: FDA-Public Use
  Company Number: 2006102675

PATIENT
  Age: 95 Year
  Sex: Female
  Weight: 54.4316 kg

DRUGS (8)
  1. DETROL LA [Suspect]
     Indication: DRUG USE FOR UNKNOWN INDICATION
     Dosage: 4 MG (4 MG, 1 IN 1 D)
  2. CENTRUM (MINERALS NOS, VITAMINS NOS) [Concomitant]
  3. ALL OTHER THERAPEUTIC PRODUCTS (ALL OTHER THERAPEUTIC PRODUCTS) [Concomitant]
  4. PREVACID [Concomitant]
  5. ACETAMINOPHEN [Concomitant]
  6. VITAMINS (VITAMINS) [Concomitant]
  7. ZOLOFT [Concomitant]
  8. LAXATIVES (LAXATIVES) [Concomitant]

REACTIONS (4)
  - BALANCE DISORDER [None]
  - FATIGUE [None]
  - MUSCULOSKELETAL PAIN [None]
  - WEIGHT DECREASED [None]
